FAERS Safety Report 11815130 (Version 1)
Quarter: 2015Q4

REPORT INFORMATION
  Report Type: Spontaneous
  Country: US (occurrence: US)
  Receive Date: 20151209
  Receipt Date: 20151209
  Transmission Date: 20160305
  Serious: No
  Sender: FDA-Public Use
  Company Number: US-SA-2015SA171272

PATIENT
  Age: 83 Year
  Sex: Female

DRUGS (3)
  1. TOUJEO [Suspect]
     Active Substance: INSULIN GLARGINE
     Indication: LATENT AUTOIMMUNE DIABETES IN ADULTS
     Dosage: DOSE:6 UNIT(S)
     Route: 065
  2. LANTUS [Concomitant]
     Active Substance: INSULIN GLARGINE
     Dosage: DOSE:7 UNIT(S)
  3. SOLOSTAR [Concomitant]
     Active Substance: DEVICE
     Indication: LATENT AUTOIMMUNE DIABETES IN ADULTS

REACTIONS (4)
  - Mental disorder [Recovered/Resolved]
  - Blood glucose increased [Recovered/Resolved]
  - Dysarthria [Recovered/Resolved]
  - Blood glucose decreased [Recovered/Resolved]
